FAERS Safety Report 4469725-6 (Version None)
Quarter: 2004Q4

REPORT INFORMATION
  Report Type: 
  Country: None (occurrence: None)
  Receive Date: 20041008
  Receipt Date: 20040924
  Transmission Date: 20050328
  Serious: Yes (Death, Life-Threatening, Other)
  Sender: FDA-Public Use
  Company Number: BE-JNJFOC-20040904717

PATIENT
  Sex: Female
  Weight: 45 kg

DRUGS (10)
  1. DURAGESIC [Suspect]
     Indication: DRUG USE FOR UNKNOWN INDICATION
     Route: 062
  2. NEXIUM [Concomitant]
     Indication: OESOPHAGITIS
     Route: 049
  3. TRAZOLAN [Concomitant]
     Route: 049
  4. LORAMET [Concomitant]
     Route: 049
  5. ASAFLOW [Concomitant]
     Route: 049
  6. FURADANTINE MC [Concomitant]
     Route: 049
  7. MOTILIUM [Concomitant]
     Route: 049
  8. MEDROL 32 [Concomitant]
     Route: 049
  9. PERSANTINE RETARD [Concomitant]
     Route: 049
  10. FOSAMAX [Concomitant]
     Indication: OSTEOPOROSIS
     Route: 049

REACTIONS (2)
  - OEDEMA PERIPHERAL [None]
  - RESPIRATORY FAILURE [None]
